FAERS Safety Report 11487284 (Version 1)
Quarter: 2015Q3

REPORT INFORMATION
  Report Type: Report from Study
  Country: IN (occurrence: IN)
  Receive Date: 20150909
  Receipt Date: 20150909
  Transmission Date: 20151125
  Serious: Yes (Hospitalization, Other)
  Sender: FDA-Public Use
  Company Number: IN-BAXTER-2014BAX014879

PATIENT
  Age: 63 Year
  Sex: Female

DRUGS (1)
  1. DIANEAL PD-2 WITH DEXTROSE [Suspect]
     Active Substance: CALCIUM CHLORIDE\DEXTROSE MONOHYDRATE\MAGNESIUM CHLORIDE\SODIUM CHLORIDE\SODIUM LACTATE
     Indication: PERITONEAL DIALYSIS
     Dosage: 3 BAG ( 2 LITERS EACH)
     Route: 033
     Dates: start: 20130306

REACTIONS (6)
  - Infection [Recovered/Resolved]
  - Immunodeficiency [Unknown]
  - Blood pressure decreased [Unknown]
  - Peritoneal cloudy effluent [Unknown]
  - Feeding disorder [Unknown]
  - Vomiting [Unknown]
